FAERS Safety Report 10074751 (Version 1)
Quarter: 2014Q2

REPORT INFORMATION
  Report Type: Spontaneous
  Country: US (occurrence: US)
  Receive Date: 20140414
  Receipt Date: 20140414
  Transmission Date: 20141212
  Serious: Yes (Other)
  Sender: FDA-Public Use
  Company Number: US-BIOGENIDEC-2014BI032115

PATIENT
  Sex: Female

DRUGS (9)
  1. AVONEX [Suspect]
     Indication: MULTIPLE SCLEROSIS
     Route: 030
     Dates: start: 20040917
  2. SYNTHROID [Concomitant]
  3. SIMVASTATIN [Concomitant]
  4. PREVACID [Concomitant]
  5. FISH OIL [Concomitant]
  6. CENTRUM SILVER [Concomitant]
  7. COPAXONE [Concomitant]
     Route: 058
  8. METHYLPREDNISOLONE [Concomitant]
     Route: 048
  9. TRAMADOL [Concomitant]

REACTIONS (1)
  - Neoplasm malignant [Not Recovered/Not Resolved]
